FAERS Safety Report 7184782-4 (Version None)
Quarter: 2010Q4

REPORT INFORMATION
  Report Type: 
  Country: None (occurrence: None)
  Receive Date: 20101123
  Receipt Date: 20100915
  Transmission Date: 20110411
  Serious: No
  Sender: FDA-Public Use
  Company Number: 018866

PATIENT
  Sex: Male
  Weight: 77.1 kg

DRUGS (1)
  1. CIMZIA [Suspect]
     Indication: CROHN'S DISEASE
     Dosage: (2 DF 1X/MONTH, SHOTS SUBCUTANEOUS)
     Route: 058
     Dates: start: 20100801

REACTIONS (2)
  - DISCOMFORT [None]
  - MUSCULOSKELETAL DISCOMFORT [None]
